FAERS Safety Report 23668508 (Version 1)
Quarter: 2024Q1

REPORT INFORMATION
  Report Type: Spontaneous
  Country: IN (occurrence: IN)
  Receive Date: 20240325
  Receipt Date: 20240325
  Transmission Date: 20240410
  Serious: Yes (Other)
  Sender: FDA-Public Use
  Company Number: IN-002147023-NVSC2024IN059432

PATIENT
  Age: 61 Year
  Sex: Female

DRUGS (1)
  1. RIBOCICLIB [Suspect]
     Active Substance: RIBOCICLIB
     Indication: Product used for unknown indication
     Dosage: 400 MG, QD
     Route: 048
     Dates: start: 20240202

REACTIONS (6)
  - Metastasis [Unknown]
  - Nasopharyngitis [Unknown]
  - Dyslipidaemia [Unknown]
  - Palpitations [Unknown]
  - Cough [Unknown]
  - Vertigo [Unknown]

NARRATIVE: CASE EVENT DATE: 20240223
